FAERS Safety Report 5676926-8 (Version None)
Quarter: 2008Q1

REPORT INFORMATION
  Report Type: 
  Country: None (occurrence: None)
  Receive Date: 20080324
  Receipt Date: 20080317
  Transmission Date: 20080703
  Serious: Yes (Hospitalization)
  Sender: FDA-Public Use
  Company Number: JP-BRISTOL-MYERS SQUIBB COMPANY-14070841

PATIENT
  Age: 60 Year
  Sex: Male

DRUGS (7)
  1. BRIPLATIN [Suspect]
     Indication: GASTRIC CANCER
     Route: 041
     Dates: start: 20070517, end: 20070517
  2. TS-1 [Suspect]
     Indication: GASTRIC CANCER
     Dosage: INTERRUPTED ON 24MAY07, DURATION 15 DAYS.RESTARTED FROM 15JUN07-UNK, PO.
     Route: 048
     Dates: start: 20070510
  3. LENTINAN [Concomitant]
     Indication: GASTRIC CANCER
     Route: 041
     Dates: start: 20070517, end: 20070517
  4. NORVASC [Concomitant]
     Route: 048
  5. ITOROL [Concomitant]
     Route: 048
  6. SIGMART [Concomitant]
     Route: 048
  7. DILTIAZEM HCL [Concomitant]
     Route: 048

REACTIONS (2)
  - CEREBRAL INFARCTION [None]
  - RENAL INFARCT [None]
